FAERS Safety Report 16650539 (Version 1)
Quarter: 2019Q3

REPORT INFORMATION
  Report Type: Spontaneous
  Country: CA (occurrence: CA)
  Receive Date: 20190731
  Receipt Date: 20190731
  Transmission Date: 20191004
  Serious: Yes (Hospitalization, Other)
  Sender: FDA-Public Use
  Company Number: CA-TEVA-2019-CA-1084570

PATIENT
  Sex: Male

DRUGS (3)
  1. PREDNISONE. [Suspect]
     Active Substance: PREDNISONE
     Route: 048
     Dates: start: 201812, end: 201904
  2. ASPIRIN. [Concomitant]
     Active Substance: ASPIRIN
     Dates: start: 201812, end: 201901
  3. HUMIRA [Concomitant]
     Active Substance: ADALIMUMAB
     Dates: start: 201902

REACTIONS (2)
  - Colitis ulcerative [Unknown]
  - Drug ineffective [Unknown]
